FAERS Safety Report 21643572 (Version 1)
Quarter: 2022Q4

REPORT INFORMATION
  Report Type: Spontaneous
  Country: US (occurrence: None)
  Receive Date: 20221123
  Receipt Date: 20221123
  Transmission Date: 20230113
  Serious: Yes (Disabling)
  Sender: FDA-Public Use
  Company Number: None

PATIENT
  Sex: Male
  Weight: 71.67 kg

DRUGS (8)
  1. METFORMIN HYDROCHLORIDE [Suspect]
     Active Substance: METFORMIN HYDROCHLORIDE
     Indication: Diabetes mellitus
     Dosage: FREQUENCY : DAILY;?
     Route: 048
     Dates: start: 201808, end: 20200912
  2. GABAPENTIN [Concomitant]
     Active Substance: GABAPENTIN
  3. TAMSULOSIN [Concomitant]
     Active Substance: TAMSULOSIN
  4. LOW DOSE ASPIRIN [Concomitant]
     Active Substance: ASPIRIN
  5. FINASTERIDE [Concomitant]
     Active Substance: FINASTERIDE
  6. GLIPIZIDE [Concomitant]
     Active Substance: GLIPIZIDE
  7. ATORVASTATIN [Concomitant]
     Active Substance: ATORVASTATIN
  8. VITAMIN D [Concomitant]
     Active Substance: VITAMIN D NOS

REACTIONS (3)
  - Arthralgia [None]
  - Product contamination [None]
  - Injury [None]

NARRATIVE: CASE EVENT DATE: 20180801
